FAERS Safety Report 18391218 (Version 2)
Quarter: 2020Q4

REPORT INFORMATION
  Report Type: Spontaneous
  Country: US (occurrence: US)
  Receive Date: 20201016
  Receipt Date: 20201020
  Transmission Date: 20210114
  Serious: No
  Sender: FDA-Public Use
  Company Number: US-BAYER-2020-223504

PATIENT
  Age: 67 Year
  Sex: Female

DRUGS (2)
  1. CLARITIN [Suspect]
     Active Substance: LORATADINE
     Indication: ALLERGIC RESPIRATORY SYMPTOM
  2. CLARITIN [Suspect]
     Active Substance: LORATADINE
     Indication: NASOPHARYNGITIS
     Dosage: 1 DF
     Route: 048
     Dates: start: 20201015, end: 20201015

REACTIONS (3)
  - Drug ineffective [Not Recovered/Not Resolved]
  - Sneezing [Not Recovered/Not Resolved]
  - Headache [None]

NARRATIVE: CASE EVENT DATE: 20201015
